FAERS Safety Report 7905990-8 (Version None)
Quarter: 2011Q4

REPORT INFORMATION
  Report Type: 
  Country: None (occurrence: None)
  Receive Date: 20111109
  Receipt Date: 20111109
  Transmission Date: 20120403
  Serious: No
  Sender: FDA-Public Use
  Company Number: None

PATIENT
  Sex: Female
  Weight: 61.2356 kg

DRUGS (4)
  1. METHIMAZOLE [Suspect]
     Dosage: 1/2 TAB QD
  2. SIMVASTATIN [Suspect]
     Dosage: QD
  3. HYDROCHLOROTHIAZIDE [Suspect]
     Dosage: CAP 1 QD
  4. AMLODIPINE [Suspect]
     Dosage: PM

REACTIONS (1)
  - TONGUE OEDEMA [None]
